FAERS Safety Report 9681932 (Version 4)
Quarter: 2013Q4

REPORT INFORMATION
  Report Type: Report from Study
  Country: US (occurrence: US)
  Receive Date: 20131111
  Receipt Date: 20131220
  Transmission Date: 20140711
  Serious: Yes (Hospitalization)
  Sender: FDA-Public Use
  Company Number: US-US-EMD SERONO, INC.-7246935

PATIENT
  Age: 27 Year
  Sex: Female

DRUGS (5)
  1. REBIF [Suspect]
     Indication: MULTIPLE SCLEROSIS
     Route: 058
     Dates: start: 20100224
  2. REBIF [Suspect]
     Route: 058
  3. OXYBUTYNIN [Concomitant]
     Indication: PRODUCT USED FOR UNKNOWN INDICATION
  4. OXYBUTYNIN [Concomitant]
     Indication: PRODUCT USED FOR UNKNOWN INDICATION
  5. RELPAX [Concomitant]
     Indication: MIGRAINE

REACTIONS (7)
  - Bipolar disorder [Recovering/Resolving]
  - Head discomfort [Not Recovered/Not Resolved]
  - Concussion [Unknown]
  - Swollen tongue [Unknown]
  - Speech disorder [Unknown]
  - Migraine [Unknown]
  - Influenza like illness [Unknown]
